FAERS Safety Report 7248427-7 (Version None)
Quarter: 2011Q1

REPORT INFORMATION
  Report Type: 
  Country: None (occurrence: None)
  Receive Date: 20110127
  Receipt Date: 20110114
  Transmission Date: 20110831
  Serious: Yes (Hospitalization)
  Sender: FDA-Public Use
  Company Number: GB-CELGENEUS-167-50794-11011608

PATIENT
  Sex: Male

DRUGS (4)
  1. ATRA [Suspect]
     Route: 065
     Dates: start: 20100823, end: 20101224
  2. VALPROATE SODIUM [Suspect]
     Route: 065
     Dates: start: 20100823, end: 20101224
  3. THEOPHYLLINE [Suspect]
     Route: 065
     Dates: start: 20100823, end: 20101224
  4. VIDAZA [Suspect]
     Route: 050
     Dates: start: 20100823, end: 20101214

REACTIONS (1)
  - INFECTION [None]
